FAERS Safety Report 17083469 (Version 3)
Quarter: 2019Q4

REPORT INFORMATION
  Report Type: Spontaneous
  Country: KR (occurrence: KR)
  Receive Date: 20191127
  Receipt Date: 20191210
  Transmission Date: 20200122
  Serious: Yes (Other)
  Sender: FDA-Public Use
  Company Number: KR-ASTRAZENECA-2019SF65140

PATIENT
  Age: 70 Year
  Sex: Female
  Weight: 62 kg

DRUGS (1)
  1. IMFINZI [Suspect]
     Active Substance: DURVALUMAB
     Dosage: (500MG : 1 VIAL AND 120MG : 1 VIAL) EVERY 2 WEEKS
     Route: 042
     Dates: start: 20190701

REACTIONS (1)
  - Pneumonitis [Unknown]
